FAERS Safety Report 11666695 (Version 2)
Quarter: 2015Q4

REPORT INFORMATION
  Report Type: Report from Study
  Country: US (occurrence: US)
  Receive Date: 20151027
  Receipt Date: 20151224
  Transmission Date: 20160304
  Serious: Yes (Hospitalization)
  Sender: FDA-Public Use
  Company Number: PHHO2013US017773

PATIENT
  Age: 66 Year
  Sex: Female
  Weight: 88.5 kg

DRUGS (2)
  1. ELTROMBOPAG [Suspect]
     Active Substance: ELTROMBOPAG
     Indication: IMMUNE THROMBOCYTOPENIC PURPURA
     Dosage: 75 MG, QD
     Route: 048
     Dates: start: 20130429
  2. ELTROMBOPAG [Suspect]
     Active Substance: ELTROMBOPAG
     Dosage: 150 MG, QD
     Route: 048
     Dates: start: 20140213

REACTIONS (3)
  - Staphylococcal bacteraemia [Recovering/Resolving]
  - Enterococcal infection [Unknown]
  - Haematoma infection [Recovering/Resolving]

NARRATIVE: CASE EVENT DATE: 20131115
